FAERS Safety Report 4970955-5 (Version None)
Quarter: 2006Q2

REPORT INFORMATION
  Report Type: 
  Country: None (occurrence: None)
  Receive Date: 20060411
  Receipt Date: 20060411
  Transmission Date: 20061013
  Serious: No
  Sender: FDA-Public Use
  Company Number: None

PATIENT
  Sex: Female
  Weight: 58.9676 kg

DRUGS (1)
  1. PREMARIN [Suspect]
     Indication: OOPHORECTOMY BILATERAL
     Dosage: ONE EVERY DAY PO
     Route: 048
     Dates: start: 20060310, end: 20060410

REACTIONS (4)
  - FEELING HOT [None]
  - IRRITABILITY [None]
  - NIGHT SWEATS [None]
  - PHARMACEUTICAL PRODUCT COMPLAINT [None]
